FAERS Safety Report 17103501 (Version 1)
Quarter: 2019Q4

REPORT INFORMATION
  Report Type: Spontaneous
  Country: US (occurrence: US)
  Receive Date: 20191203
  Receipt Date: 20191203
  Transmission Date: 20200122
  Serious: Yes (Hospitalization)
  Sender: FDA-Public Use
  Company Number: US-ASTRAZENECA-2019SF71140

PATIENT
  Sex: Male

DRUGS (1)
  1. SYNAGIS [Suspect]
     Active Substance: PALIVIZUMAB
     Indication: VASCULAR MALFORMATION
     Dosage: 15 MG/KG MONTHLY (OF 50 MG/0.5 ML AND 100 MG/ML)
     Route: 030
     Dates: start: 20191015

REACTIONS (1)
  - Respiratory syncytial virus infection [Unknown]
